FAERS Safety Report 16545194 (Version 2)
Quarter: 2020Q2

REPORT INFORMATION
  Report Type: Spontaneous
  Country: GB (occurrence: GB)
  Receive Date: 20190709
  Receipt Date: 20200409
  Transmission Date: 20200713
  Serious: Yes (Life-Threatening, Hospitalization, Disabling)
  Sender: FDA-Public Use
  Company Number: GB-PFIZER INC-2019289002

PATIENT
  Age: 74 Year
  Sex: Female
  Weight: 68 kg

DRUGS (1)
  1. ZOLEDRONIC ACID [Suspect]
     Active Substance: ZOLEDRONIC ACID
     Dosage: 5 MG, UNK
     Route: 051
     Dates: start: 20180110, end: 20190220

REACTIONS (2)
  - Acute kidney injury [Not Recovered/Not Resolved]
  - Hyporesponsive to stimuli [Unknown]

NARRATIVE: CASE EVENT DATE: 20190217
